FAERS Safety Report 5206596-4 (Version None)
Quarter: 2006Q4

REPORT INFORMATION
  Report Type: 
  Country: None (occurrence: None)
  Receive Date: 20061026
  Receipt Date: 20060902
  Transmission Date: 20070319
  Serious: No
  Sender: FDA-Public Use
  Company Number: 2006108686

PATIENT
  Age: 53 Year
  Sex: Female

DRUGS (5)
  1. LYRICA [Suspect]
     Indication: NEUROPATHY PERIPHERAL
     Dosage: 375  MG (2 IN 1 D), ORAL
     Route: 048
     Dates: start: 20060101
  2. VICODIN [Concomitant]
  3. IBUPROFEN [Concomitant]
  4. INTEFERON BETA (INTERFERON BETA) [Concomitant]
  5. AMBIEN [Concomitant]

REACTIONS (3)
  - BLOOD PRESSURE INCREASED [None]
  - VISUAL ACUITY REDUCED [None]
  - WEIGHT INCREASED [None]
